FAERS Safety Report 6300940-2 (Version None)
Quarter: 2009Q3

REPORT INFORMATION
  Report Type: 
  Country: None (occurrence: None)
  Receive Date: 20090807
  Receipt Date: 20070517
  Transmission Date: 20100115
  Serious: Yes (Hospitalization, Other)
  Sender: FDA-Public Use
  Company Number: US-ASTRAZENECA-2006UW24855

PATIENT
  Age: 535 Month
  Sex: Male
  Weight: 86.2 kg

DRUGS (9)
  1. SEROQUEL [Suspect]
     Indication: DEPRESSION
     Dosage: 100-200MG
     Route: 048
     Dates: start: 20030801
  2. SEROQUEL [Suspect]
     Dosage: 25 MG - 300 MG
     Route: 048
     Dates: start: 20040218
  3. ZYPREXA [Concomitant]
     Dates: start: 20031224
  4. BUPROPION HCL [Concomitant]
     Dates: start: 20040728
  5. ENALAPRIL MALEATE [Concomitant]
     Dates: start: 20041206
  6. BUSPIRONE HCL [Concomitant]
     Dates: start: 20041206
  7. METFORMIN [Concomitant]
     Dates: start: 20041206
  8. WELLBUTRIN [Concomitant]
     Dates: start: 20040209
  9. INSULIN [Concomitant]
     Dates: start: 20040729

REACTIONS (8)
  - APPENDICITIS PERFORATED [None]
  - DIABETES MELLITUS [None]
  - DIABETIC COMPLICATION [None]
  - DIABETIC NEUROPATHY [None]
  - ILL-DEFINED DISORDER [None]
  - INTERCAPILLARY GLOMERULOSCLEROSIS [None]
  - PANCREATITIS [None]
  - TYPE 1 DIABETES MELLITUS [None]
